FAERS Safety Report 7363211-1 (Version None)
Quarter: 2011Q1

REPORT INFORMATION
  Report Type: 
  Country: None (occurrence: None)
  Receive Date: 20110321
  Receipt Date: 20110311
  Transmission Date: 20110831
  Serious: Yes (Other)
  Sender: FDA-Public Use
  Company Number: JP-ASTELLAS-2011JP001852

PATIENT
  Age: 44 Year
  Sex: Male

DRUGS (2)
  1. PREDNISOLONE [Suspect]
     Dosage: 22.5 MG, UNKNOWN/D
     Route: 065
  2. PROGRAF [Suspect]
     Indication: MYASTHENIA GRAVIS
     Route: 065

REACTIONS (2)
  - SPINAL COLUMN STENOSIS [None]
  - NEPHROLITHIASIS [None]
